FAERS Safety Report 7811958-2 (Version None)
Quarter: 2011Q4

REPORT INFORMATION
  Report Type: 
  Country: None (occurrence: None)
  Receive Date: 20111013
  Receipt Date: 20110930
  Transmission Date: 20120403
  Serious: Yes (Disabling, Other)
  Sender: FDA-Public Use
  Company Number: PHHY2011BR87053

PATIENT
  Age: 85 Year
  Sex: Female
  Weight: 56 kg

DRUGS (4)
  1. VITAMIN K TAB [Concomitant]
     Dosage: 6 DRP, UNK
  2. PURAN [Concomitant]
     Indication: THYROID DISORDER
     Dosage: 1 DF, UNK
  3. SIMVASTATIN [Concomitant]
     Indication: BLOOD CHOLESTEROL INCREASED
     Dosage: 1 DF, UNK
  4. EXELON [Suspect]
     Indication: DEMENTIA ALZHEIMER'S TYPE
     Dosage: 4.5 MG, 1 CAPSULE A DAY
     Route: 048

REACTIONS (6)
  - FALL [None]
  - RETCHING [None]
  - MALAISE [None]
  - PAIN [None]
  - FEELING ABNORMAL [None]
  - FEMUR FRACTURE [None]
